FAERS Safety Report 23170100 (Version 3)
Quarter: 2024Q1

REPORT INFORMATION
  Report Type: Report from Study
  Country: US (occurrence: US)
  Receive Date: 20231110
  Receipt Date: 20240104
  Transmission Date: 20240410
  Serious: Yes (Hospitalization, Other)
  Sender: FDA-Public Use
  Company Number: US-002147023-NVSC2023US236969

PATIENT
  Sex: Female

DRUGS (1)
  1. MAYZENT [Suspect]
     Active Substance: SIPONIMOD
     Indication: Product used for unknown indication
     Dosage: UNK
     Route: 065

REACTIONS (10)
  - Suicidal behaviour [Unknown]
  - Urinary retention [Unknown]
  - Fall [Unknown]
  - Asthenia [Unknown]
  - Gait disturbance [Unknown]
  - Decreased appetite [Unknown]
  - Urinary tract infection [Unknown]
  - Candida infection [Unknown]
  - Cholelithiasis [Recovered/Resolved]
  - Renal disorder [Unknown]
